FAERS Safety Report 9881641 (Version 1)
Quarter: 2014Q1

REPORT INFORMATION
  Report Type: Spontaneous
  Country: US (occurrence: US)
  Receive Date: 20140207
  Receipt Date: 20140207
  Transmission Date: 20141002
  Serious: Yes (Other)
  Sender: FDA-Public Use
  Company Number: US-ACTAVIS-2014-01517

PATIENT
  Sex: Male
  Weight: 122 kg

DRUGS (6)
  1. PROPRANOLOL HYDROCHLORIDE (AELLC) [Suspect]
     Indication: ANXIETY
     Dosage: 80 MG, BID
     Route: 065
  2. PROPRANOLOL HYDROCHLORIDE (AELLC) [Suspect]
     Indication: HYPERTENSION
  3. NEXIUM                             /01479302/ [Concomitant]
     Indication: GASTROOESOPHAGEAL REFLUX DISEASE
     Dosage: 40 MG, DAILY
     Route: 048
     Dates: start: 19990101
  4. DOXAZOSIN [Concomitant]
     Indication: ANXIETY
     Dosage: 80 MG, BID
     Route: 048
     Dates: start: 20100101
  5. KLONOPIN [Concomitant]
     Indication: ANXIETY
     Dosage: 0.5 MG, BID
     Route: 048
     Dates: start: 20100101
  6. NORTRIPTYLINE [Concomitant]
     Indication: ANXIETY
     Dosage: 25 MG, BID
     Route: 048
     Dates: start: 20100101

REACTIONS (4)
  - Blood pressure increased [Unknown]
  - Drug ineffective [Not Recovered/Not Resolved]
  - Palpitations [Not Recovered/Not Resolved]
  - Anxiety [Not Recovered/Not Resolved]
